FAERS Safety Report 25427802 (Version 2)
Quarter: 2025Q3

REPORT INFORMATION
  Report Type: Spontaneous
  Country: EU (occurrence: EU)
  Receive Date: 20250612
  Receipt Date: 20250702
  Transmission Date: 20251021
  Serious: Yes (Other)
  Sender: PFIZER
  Company Number: None

PATIENT
  Age: 27 Year
  Sex: Female
  Weight: 80 kg

DRUGS (1)
  1. CYTOTEC [Suspect]
     Active Substance: MISOPROSTOL
     Indication: Labour induction
     Route: 048

REACTIONS (6)
  - Maternal exposure during pregnancy [Unknown]
  - Traumatic delivery [Recovered/Resolved with Sequelae]
  - Syncope [Recovering/Resolving]
  - Uterine tachysystole [Recovering/Resolving]
  - Delayed delivery [Recovering/Resolving]
  - Off label use [Unknown]
